FAERS Safety Report 17228637 (Version 1)
Quarter: 2020Q1

REPORT INFORMATION
  Report Type: Spontaneous
  Country: US (occurrence: US)
  Receive Date: 20200103
  Receipt Date: 20200103
  Transmission Date: 20200409
  Serious: Yes (Other)
  Sender: FDA-Public Use
  Company Number: NVSC2019US084732

PATIENT
  Age: 2 Year
  Sex: Male
  Weight: 12.5 kg

DRUGS (2)
  1. ATROPINE SULFATE. [Suspect]
     Active Substance: ATROPINE SULFATE
     Indication: BRADYCARDIA
     Dosage: UNK
     Route: 065
  2. GLYCOPYRRONIUM BROMIDE [Suspect]
     Active Substance: GLYCOPYRRONIUM
     Indication: BRADYCARDIA
     Dosage: UNK
     Route: 065

REACTIONS (1)
  - Bradycardia [Unknown]
